FAERS Safety Report 13423643 (Version 3)
Quarter: 2018Q2

REPORT INFORMATION
  Report Type: Spontaneous
  Country: GB (occurrence: GB)
  Receive Date: 20170410
  Receipt Date: 20180430
  Transmission Date: 20180711
  Serious: Yes (Life-Threatening, Hospitalization, Disabling, Other)
  Sender: FDA-Public Use
  Company Number: GB-JNJFOC-20170407792

PATIENT
  Age: 46 Year
  Sex: Female
  Weight: 70 kg

DRUGS (17)
  1. CLARITHROMYCIN. [Concomitant]
     Active Substance: CLARITHROMYCIN
     Dosage: IN MORNING
     Route: 065
  2. PARACETAMOL [Concomitant]
     Active Substance: ACETAMINOPHEN
     Dosage: IN MORNING
     Route: 065
  3. BISACODYL. [Concomitant]
     Active Substance: BISACODYL
     Dosage: IN MORNING
     Route: 065
  4. METFORMIN [Concomitant]
     Active Substance: METFORMIN HYDROCHLORIDE
     Dosage: BEFORE BREAKFAST
     Route: 065
  5. DALTEPARIN [Concomitant]
     Active Substance: DALTEPARIN
     Dosage: IN MORNING
     Route: 065
  6. CANAGLIFLOZIN [Suspect]
     Active Substance: CANAGLIFLOZIN
     Indication: TYPE 2 DIABETES MELLITUS
     Dosage: BEFORE BREAKFAST
     Route: 048
     Dates: start: 20160119
  7. FENTANYL. [Concomitant]
     Active Substance: FENTANYL
     Dosage: IN MORNING
     Route: 065
  8. CIPROFLOXACIN. [Concomitant]
     Active Substance: CIPROFLOXACIN
     Dosage: IN MORNING
     Route: 065
  9. CANAGLIFLOZIN [Suspect]
     Active Substance: CANAGLIFLOZIN
     Indication: TYPE 2 DIABETES MELLITUS
     Route: 048
     Dates: start: 201706, end: 20171221
  10. PERINDOPRIL [Concomitant]
     Active Substance: PERINDOPRIL
     Dosage: IN MORNING
     Route: 065
  11. ONDANSETRON [Concomitant]
     Active Substance: ONDANSETRON
     Dosage: IN MORNING
     Route: 065
  12. MORPHINE SULFATE. [Concomitant]
     Active Substance: MORPHINE SULFATE
     Dosage: IN MORNING
     Route: 065
  13. SIMVASTATIN. [Concomitant]
     Active Substance: SIMVASTATIN
     Route: 065
  14. CYCLIZINE HYDROCHLORIDE [Concomitant]
     Active Substance: CYCLIZINE HYDROCHLORIDE
     Dosage: IN MORNING
     Route: 065
  15. CODEINE PHOSPHATE [Concomitant]
     Active Substance: CODEINE PHOSPHATE
     Dosage: IN MORNING
     Route: 065
  16. PANTOPRAZOLE [Concomitant]
     Active Substance: PANTOPRAZOLE
     Dosage: IN MORNING
     Route: 065
  17. PERINDOPRIL ERBUMINE. [Concomitant]
     Active Substance: PERINDOPRIL ERBUMINE
     Route: 065

REACTIONS (5)
  - Vomiting [Unknown]
  - Diarrhoea [Unknown]
  - Diabetic ketoacidosis [Recovered/Resolved]
  - Hypothermia [Unknown]
  - Pancreatitis [Unknown]

NARRATIVE: CASE EVENT DATE: 20170323
